FAERS Safety Report 23246502 (Version 1)
Quarter: 2023Q4

REPORT INFORMATION
  Report Type: Spontaneous
  Country: US (occurrence: US)
  Receive Date: 20231130
  Receipt Date: 20231130
  Transmission Date: 20240109
  Serious: Yes (Other)
  Sender: FDA-Public Use
  Company Number: US-BRISTOL-MYERS SQUIBB COMPANY-2023-168182

PATIENT
  Age: 34 Year
  Sex: Male

DRUGS (1)
  1. NIVOLUMAB [Suspect]
     Active Substance: NIVOLUMAB
     Indication: Metastatic malignant melanoma
     Dosage: (0.3-10 MG/KG/MONTH, 10 MONTH, 12 CYCLES)
     Dates: start: 2011, end: 2012

REACTIONS (3)
  - Hepatic enzyme increased [Unknown]
  - Hypothyroidism [Unknown]
  - Off label use [Unknown]
